FAERS Safety Report 4328717-8 (Version None)
Quarter: 2004Q1

REPORT INFORMATION
  Report Type: 
  Country: None (occurrence: None)
  Receive Date: 20040329
  Receipt Date: 20040209
  Transmission Date: 20041129
  Serious: Yes (Hospitalization)
  Sender: FDA-Public Use
  Company Number: 04P-163-0249681-00

PATIENT
  Age: 70 Year
  Sex: Male
  Weight: 71.6683 kg

DRUGS (21)
  1. HUMIRA [Suspect]
     Indication: RHEUMATOID ARTHRITIS
     Dosage: 40 MG, 1 IN 2 WK, SUBCUTANEOUS
     Route: 058
     Dates: start: 20030101, end: 20030901
  2. FENOFIBRATE [Concomitant]
  3. ZOCOR [Concomitant]
  4. TRAZODONE HCL [Concomitant]
  5. DIGOXIN [Concomitant]
  6. GLYBURIDE [Concomitant]
  7. METHOTREXATE SODIUM [Concomitant]
  8. ISODRIL [Concomitant]
  9. TOPRAL XL [Concomitant]
  10. CAPTOPRIL [Concomitant]
  11. NOVOLIN 70/30 [Concomitant]
  12. CYPROHEPTADINE HCL [Concomitant]
  13. ACETAMINOPHEN [Concomitant]
  14. PREDNISONE [Concomitant]
  15. MAGNESIUM OXIDE [Concomitant]
  16. FOLIC ACID [Concomitant]
  17. FUROSEMIDE [Concomitant]
  18. POTASSIUM CHLORIDE [Concomitant]
  19. SALSALATE [Concomitant]
  20. CALCIUM [Concomitant]
  21. ALBUTEROL SULFATE [Concomitant]

REACTIONS (1)
  - SINUSITIS [None]
